FAERS Safety Report 19404653 (Version 1)
Quarter: 2021Q2

REPORT INFORMATION
  Report Type: Spontaneous
  Country: DE (occurrence: DE)
  Receive Date: 20210611
  Receipt Date: 20210611
  Transmission Date: 20210717
  Serious: Yes (Hospitalization)
  Sender: FDA-Public Use
  Company Number: DE-TEVA-2021-DE-1919920

PATIENT
  Age: 72 Year
  Sex: Male

DRUGS (7)
  1. CANDESARTAN. [Suspect]
     Active Substance: CANDESARTAN
     Dosage: 16 MILLIGRAM DAILY; 1?0?0?0,
     Route: 048
  2. METOPROLOL. [Concomitant]
     Active Substance: METOPROLOL
     Dosage: 1 DOSAGE FORMS DAILY; 95 MG, 0.5?0?0.5?0
     Route: 048
  3. SPIRONOLACTON [Suspect]
     Active Substance: SPIRONOLACTONE
     Dosage: .5 DOSAGE FORMS DAILY; 500 MG, 0.5?0?0?0,
     Route: 048
  4. RIVAROXABAN [Suspect]
     Active Substance: RIVAROXABAN
     Dosage: 2.5 MILLIGRAM DAILY; 1?0?0?0
     Route: 048
  5. PANTOPRAZOL [Concomitant]
     Active Substance: PANTOPRAZOLE SODIUM
     Dosage: 20 MILLIGRAM DAILY; 1?0?0?0,
     Route: 048
  6. TORASEMID [Suspect]
     Active Substance: TORSEMIDE
     Dosage: 2 DOSAGE FORMS DAILY; 10 MG, 2?0?0?0,
     Route: 048
  7. SIMVASTATIN. [Concomitant]
     Active Substance: SIMVASTATIN
     Dosage: 40 MILLIGRAM DAILY;  0?0?1?0,
     Route: 048

REACTIONS (4)
  - Ascites [Unknown]
  - Dyspnoea [Unknown]
  - Pleural effusion [Unknown]
  - Anaemia [Unknown]
